FAERS Safety Report 24216227 (Version 1)
Quarter: 2024Q3

REPORT INFORMATION
  Report Type: Report from Study
  Country: US (occurrence: US)
  Receive Date: 20240816
  Receipt Date: 20240816
  Transmission Date: 20241017
  Serious: Yes (Other)
  Sender: NOVARTIS
  Company Number: US-002147023-NVSC2024US163852

PATIENT
  Age: 75 Year
  Sex: Male
  Weight: 79.38 kg

DRUGS (1)
  1. ENTRESTO [Suspect]
     Active Substance: SACUBITRIL\VALSARTAN
     Indication: Product used for unknown indication
     Dosage: 49 MG, BID (49/51 MGS, STARTED TAKING ENTRESTO 2 WEEKS AGO)
     Route: 065
     Dates: start: 202307

REACTIONS (3)
  - Right ventricular failure [Unknown]
  - Dyspnoea [Unknown]
  - Drug ineffective [Unknown]
